FAERS Safety Report 8312647-0 (Version None)
Quarter: 2012Q2

REPORT INFORMATION
  Report Type: 
  Country: None (occurrence: None)
  Receive Date: 20120424
  Receipt Date: 20120103
  Transmission Date: 20120825
  Serious: Yes (Hospitalization)
  Sender: FDA-Public Use
  Company Number: 2012HGS-003071

PATIENT
  Age: 47 Year
  Sex: Female
  Weight: 122.4712 kg

DRUGS (11)
  1. CELLCEPT (MYCOPHENOLATE MOFETIL) (MYCOPHENOLATE MOFETIL) [Concomitant]
  2. PLAQUENOL (HYDROXYCHLOROQUINE SULFATE) (HYDROXYCHLOROQUINE SULFATE) [Concomitant]
  3. FOLIC ACID [Concomitant]
  4. EPIDEN (EPINDEPHRINE) (EPINEPHRINE) [Concomitant]
  5. PREDNISONE [Concomitant]
  6. LIBRAX (NIRVAXAL) (CHLORDIAZEPOXIDE, CLIDINIUM BROMDE) [Concomitant]
  7. MAGNESIUM (MAGNESIUM) (MAGNESIUM) [Concomitant]
  8. BENLYSTA [Suspect]
     Indication: SYSTEMIC LUPUS ERYTHEMATOSUS
     Dosage: 10 MG/KG,  1 IN 28 D, INTRAVENOUS DRIP
     Route: 041
     Dates: start: 20110930
  9. CALCITROL (CALCITROL /00508501/) 9ERGOCALCIFEROL, RETINOL, CALCIUM CAR [Concomitant]
  10. NEXIUM [Concomitant]
  11. CALCIUM (CALCIUM) (CALCIUM) [Concomitant]

REACTIONS (3)
  - DRUG INEFFECTIVE [None]
  - SYSTEMIC LUPUS ERYTHEMATOSUS [None]
  - PANCREATITIS [None]
